FAERS Safety Report 19476974 (Version 1)
Quarter: 2021Q2

REPORT INFORMATION
  Report Type: Spontaneous
  Country: RU (occurrence: RU)
  Receive Date: 20210630
  Receipt Date: 20210630
  Transmission Date: 20210717
  Serious: Yes (Other)
  Sender: FDA-Public Use
  Company Number: RU-FRESENIUS KABI-FK202106526

PATIENT
  Age: 11 Year
  Sex: Male

DRUGS (4)
  1. FLUOROURACIL. [Suspect]
     Active Substance: FLUOROURACIL
     Indication: NASOPHARYNGEAL CANCER
     Dosage: 3 SESSIONS OF CHEMOTHERAPY
     Route: 065
  2. CISPLATIN (MANUFACTURER UNKNOWN) [Suspect]
     Active Substance: CISPLATIN
     Indication: NASOPHARYNGEAL CANCER
     Dosage: 3 SESSIONS OF CHEMOTHERAPY
     Route: 065
  3. CALCIUM FOLINATE [Suspect]
     Active Substance: LEUCOVORIN CALCIUM
     Indication: NASOPHARYNGEAL CANCER
     Dosage: 3 SESSIONS OF CHEMOTHERAPY
     Route: 065
  4. NO DRUG NAME [Concomitant]
     Active Substance: UNSPECIFIED INGREDIENT
     Indication: NASOPHARYNGEAL CANCER
     Dosage: STARTED AND CONTINUED FOR 51 DAYS TO THE NASOPHARYNX AND THE AFFECTED LYMPH NODE (SD = 59.5 GY) ON T
     Route: 065

REACTIONS (6)
  - Polyneuropathy [Unknown]
  - Neutropenia [Unknown]
  - Pharyngeal erosion [Unknown]
  - Skin hyperpigmentation [Unknown]
  - Stomatitis [Unknown]
  - Cytopenia [Unknown]
